FAERS Safety Report 13996988 (Version 1)
Quarter: 2017Q3

REPORT INFORMATION
  Report Type: Spontaneous
  Country: TR (occurrence: TR)
  Receive Date: 20170921
  Receipt Date: 20170921
  Transmission Date: 20171128
  Serious: Yes (Other)
  Sender: FDA-Public Use
  Company Number: TR-GLAXOSMITHKLINE-TR2016GSK005750

PATIENT
  Age: 6 Year
  Sex: Female

DRUGS (2)
  1. VALPROIC ACID. [Interacting]
     Active Substance: VALPROIC ACID
     Indication: EPILEPSY
     Dosage: UNK
  2. LAMOTRIGINE. [Suspect]
     Active Substance: LAMOTRIGINE
     Indication: EPILEPSY
     Dosage: UNK
     Route: 065

REACTIONS (5)
  - Rash generalised [Recovering/Resolving]
  - Stevens-Johnson syndrome [Recovering/Resolving]
  - Mucosal ulceration [Recovering/Resolving]
  - Drug interaction [Recovering/Resolving]
  - Dermatitis bullous [Recovering/Resolving]
